FAERS Safety Report 4923833-1 (Version None)
Quarter: 2006Q1

REPORT INFORMATION
  Report Type: 
  Country: None (occurrence: None)
  Receive Date: 20060227
  Receipt Date: 20050829
  Transmission Date: 20060701
  Serious: Yes (Hospitalization)
  Sender: FDA-Public Use
  Company Number: US-MERCK-0508USA05100

PATIENT
  Age: 60 Year
  Sex: Female
  Weight: 114 kg

DRUGS (14)
  1. VIOXX [Suspect]
     Indication: PAIN
     Route: 048
     Dates: start: 19991104, end: 19991117
  2. VIOXX [Suspect]
     Route: 048
     Dates: start: 19991118, end: 20040101
  3. VIOXX [Suspect]
     Indication: OSTEOARTHRITIS
     Route: 048
     Dates: start: 19991104, end: 19991117
  4. VIOXX [Suspect]
     Route: 048
     Dates: start: 19991118, end: 20040101
  5. TYLENOL (CAPLET) [Concomitant]
     Route: 065
  6. PROVENTIL [Concomitant]
     Route: 065
  7. IMIPRAMINE OXIDE [Concomitant]
     Route: 065
  8. PROZAC [Concomitant]
     Route: 065
  9. HYDROCHLOROTHIAZIDE AND LOSARTAN POTASSIUM [Concomitant]
     Route: 065
  10. BEXTRA [Concomitant]
     Route: 065
  11. ADVAIR DISKUS 100/50 [Concomitant]
     Route: 055
  12. COMBIVENT [Concomitant]
     Route: 065
  13. ASPIRIN [Concomitant]
     Route: 065
  14. NORVASC [Concomitant]
     Route: 048

REACTIONS (13)
  - ABDOMINAL PAIN [None]
  - BUNION [None]
  - CHEST PAIN [None]
  - CHRONIC OBSTRUCTIVE PULMONARY DISEASE [None]
  - CORONARY ARTERY DISEASE [None]
  - CORONARY ARTERY OCCLUSION [None]
  - COUGH [None]
  - DYSFUNCTIONAL UTERINE BLEEDING [None]
  - JOINT INJURY [None]
  - PNEUMONIA [None]
  - SEBORRHOEIC KERATOSIS [None]
  - THROMBOCYTHAEMIA [None]
  - URINARY TRACT INFECTION [None]
